FAERS Safety Report 17485103 (Version 1)
Quarter: 2020Q1

REPORT INFORMATION
  Report Type: Spontaneous
  Country: US (occurrence: US)
  Receive Date: 20200302
  Receipt Date: 20200302
  Transmission Date: 20200409
  Serious: Yes (Hospitalization)
  Sender: FDA-Public Use
  Company Number: US-SHIRE-US202007310

PATIENT
  Age: 61 Year
  Sex: Female

DRUGS (2)
  1. GATTEX [Suspect]
     Active Substance: TEDUGLUTIDE\WATER
     Indication: SHORT-BOWEL SYNDROME
     Dosage: 2.25 MILLIGRAM, 1X/DAY:QD
     Route: 058
     Dates: start: 20190429
  2. GATTEX [Suspect]
     Active Substance: TEDUGLUTIDE\WATER
     Dosage: 0.260 MILLIGRAM, 1X/DAY:QD
     Route: 058
     Dates: start: 20190429

REACTIONS (5)
  - Faecal volume decreased [Unknown]
  - Inappropriate schedule of product administration [Not Recovered/Not Resolved]
  - Haemorrhoids [Not Recovered/Not Resolved]
  - Weight increased [Unknown]
  - Dehydration [Recovering/Resolving]

NARRATIVE: CASE EVENT DATE: 20200128
